FAERS Safety Report 7094432-3 (Version None)
Quarter: 2010Q4

REPORT INFORMATION
  Report Type: 
  Country: None (occurrence: None)
  Receive Date: 20101110
  Receipt Date: 20100930
  Transmission Date: 20110411
  Serious: Yes (Death, Hospitalization, Other)
  Sender: FDA-Public Use
  Company Number: US-BAXTER-2010BH001603

PATIENT
  Age: 1 Month
  Sex: Male
  Weight: 2 kg

DRUGS (49)
  1. HEPARIN SODIUM INJECTION [Suspect]
     Indication: CARDIOPULMONARY BYPASS
     Route: 065
     Dates: start: 20080129, end: 20080129
  2. HEPARIN SODIUM INJECTION [Suspect]
     Indication: ATRIAL THROMBOSIS
     Route: 065
     Dates: start: 20080129, end: 20080129
  3. HEPARIN SODIUM INJECTION [Suspect]
     Route: 065
     Dates: start: 20080207, end: 20080210
  4. HEPARIN SODIUM INJECTION [Suspect]
     Route: 065
     Dates: start: 20080207, end: 20080210
  5. HEPARIN SODIUM INJECTION [Suspect]
     Route: 042
     Dates: start: 20080217, end: 20080217
  6. HEPARIN SODIUM INJECTION [Suspect]
     Route: 042
     Dates: start: 20080217, end: 20080217
  7. HEPARIN SODIUM INJECTION [Suspect]
     Route: 065
     Dates: start: 20080216, end: 20080218
  8. HEPARIN SODIUM INJECTION [Suspect]
     Route: 065
     Dates: start: 20080216, end: 20080218
  9. HEPARIN SODIUM INJECTION [Suspect]
     Route: 065
     Dates: start: 20080221, end: 20080221
  10. HEPARIN SODIUM INJECTION [Suspect]
     Route: 065
     Dates: start: 20080221, end: 20080221
  11. HEPARIN SODIUM INJECTION [Suspect]
     Route: 065
     Dates: start: 20080224, end: 20080224
  12. HEPARIN SODIUM INJECTION [Suspect]
     Route: 065
     Dates: start: 20080224, end: 20080224
  13. HEPARIN SODIUM INJECTION [Suspect]
     Route: 065
     Dates: start: 20080302, end: 20080303
  14. HEPARIN SODIUM INJECTION [Suspect]
     Route: 065
     Dates: start: 20080302, end: 20080303
  15. HEPARIN SODIUM INJECTION [Suspect]
     Route: 065
     Dates: start: 20080326, end: 20080404
  16. HEPARIN SODIUM INJECTION [Suspect]
     Route: 065
     Dates: start: 20080326, end: 20080404
  17. HEPARIN SODIUM INJECTION [Suspect]
     Route: 042
     Dates: start: 20080323, end: 20080331
  18. HEPARIN SODIUM INJECTION [Suspect]
     Route: 042
     Dates: start: 20080323, end: 20080331
  19. HEPARIN SODIUM INJECTION [Suspect]
     Route: 042
     Dates: start: 20080324, end: 20080324
  20. HEPARIN SODIUM INJECTION [Suspect]
     Route: 042
     Dates: start: 20080324, end: 20080324
  21. HEPARIN SODIUM INJECTION [Suspect]
     Route: 042
     Dates: start: 20080325, end: 20080325
  22. HEPARIN SODIUM INJECTION [Suspect]
     Route: 042
     Dates: start: 20080325, end: 20080325
  23. HEPARIN SODIUM INJECTION [Suspect]
     Route: 065
     Dates: start: 20080101, end: 20080101
  24. HEPARIN SODIUM INJECTION [Suspect]
     Route: 065
     Dates: start: 20080101, end: 20080101
  25. ZANTAC [Concomitant]
     Indication: PRODUCT USED FOR UNKNOWN INDICATION
     Route: 065
  26. REGLAN [Concomitant]
     Indication: PRODUCT USED FOR UNKNOWN INDICATION
     Route: 065
  27. LASIX [Concomitant]
     Indication: PRODUCT USED FOR UNKNOWN INDICATION
     Route: 065
  28. CAFFEINE CITRATE [Concomitant]
     Indication: PRODUCT USED FOR UNKNOWN INDICATION
     Route: 065
  29. LEVOTHYROXINE [Concomitant]
     Indication: PRODUCT USED FOR UNKNOWN INDICATION
     Route: 065
  30. SODIUM BICARBONATE [Concomitant]
     Indication: METABOLIC ACIDOSIS
     Route: 042
  31. MORPHINE [Concomitant]
     Indication: PRODUCT USED FOR UNKNOWN INDICATION
     Route: 042
  32. CLOPIDOGREL [Concomitant]
     Indication: ATRIAL THROMBOSIS
     Route: 048
  33. MILRINONE [Concomitant]
     Indication: PRODUCT USED FOR UNKNOWN INDICATION
     Route: 065
  34. DOPAMINE [Concomitant]
     Indication: PRODUCT USED FOR UNKNOWN INDICATION
     Route: 065
  35. FENTANYL CITRATE [Concomitant]
     Indication: PRODUCT USED FOR UNKNOWN INDICATION
     Route: 042
  36. PANTOPRAZOLE [Concomitant]
     Indication: PRODUCT USED FOR UNKNOWN INDICATION
     Route: 065
  37. VANCOMYCIN [Concomitant]
     Indication: PRODUCT USED FOR UNKNOWN INDICATION
     Route: 065
  38. CEFOTAXIME SODIUM [Concomitant]
     Indication: PRODUCT USED FOR UNKNOWN INDICATION
     Route: 065
  39. PANCURONIUM [Concomitant]
     Indication: PRODUCT USED FOR UNKNOWN INDICATION
     Route: 065
     Dates: start: 20080321
  40. CALCIUM GLUCONATE [Concomitant]
     Indication: PRODUCT USED FOR UNKNOWN INDICATION
     Route: 065
  41. VECURONIUM BROMIDE [Concomitant]
     Indication: PRODUCT USED FOR UNKNOWN INDICATION
     Route: 065
  42. MIDAZOLAM [Concomitant]
     Indication: PRODUCT USED FOR UNKNOWN INDICATION
     Route: 065
  43. CHLOROTHIAZIDE [Concomitant]
     Indication: PRODUCT USED FOR UNKNOWN INDICATION
     Route: 065
  44. GENTAMICIN [Concomitant]
     Indication: PRODUCT USED FOR UNKNOWN INDICATION
     Route: 042
     Dates: start: 20080401
  45. CEFEPIME [Concomitant]
     Indication: PRODUCT USED FOR UNKNOWN INDICATION
     Route: 042
     Dates: start: 20080322
  46. OXACILLIN [Concomitant]
     Indication: PRODUCT USED FOR UNKNOWN INDICATION
     Route: 042
  47. PENTOBARBITAL CAP [Concomitant]
     Indication: PRODUCT USED FOR UNKNOWN INDICATION
     Route: 042
  48. CEFAZOLIN [Concomitant]
     Indication: PRODUCT USED FOR UNKNOWN INDICATION
     Route: 065
  49. NORMAL SALINE [Concomitant]
     Indication: PRODUCT USED FOR UNKNOWN INDICATION
     Route: 065

REACTIONS (8)
  - ATRIAL THROMBOSIS [None]
  - CARDIAC FAILURE CONGESTIVE [None]
  - GRUNTING [None]
  - HYPOPLASTIC LEFT HEART SYNDROME [None]
  - HYPOTHYROIDISM [None]
  - LUNG DISORDER [None]
  - METABOLIC ACIDOSIS [None]
  - PNEUMONIA STAPHYLOCOCCAL [None]
